FAERS Safety Report 4954163-X (Version None)
Quarter: 2006Q1

REPORT INFORMATION
  Report Type: 
  Country: None (occurrence: None)
  Receive Date: 20060323
  Receipt Date: 20060323
  Transmission Date: 20060701
  Serious: Yes (Death, Hospitalization)
  Sender: FDA-Public Use
  Company Number: None

PATIENT
  Age: 80 Year
  Sex: Male
  Weight: 79.3 kg

DRUGS (3)
  1. CARNITOR [Suspect]
     Indication: NEOPLASM
     Dosage: 51000 MG
     Dates: end: 20060228
  2. LUPRON [Concomitant]
  3. PACLITAXEL [Concomitant]

REACTIONS (3)
  - CLOSTRIDIUM COLITIS [None]
  - MEGACOLON [None]
  - SEPSIS SYNDROME [None]
